FAERS Safety Report 18288670 (Version 1)
Quarter: 2020Q3

REPORT INFORMATION
  Report Type: Spontaneous
  Country: US (occurrence: US)
  Receive Date: 20200920
  Receipt Date: 20200920
  Transmission Date: 20201103
  Serious: No
  Sender: FDA-Public Use
  Company Number: None

PATIENT
  Sex: Female
  Weight: 66.15 kg

DRUGS (7)
  1. GLUCOSAMINE/CHONDROITIN [Concomitant]
  2. IBUPROFEN. [Concomitant]
     Active Substance: IBUPROFEN
  3. VENLAFAXINE HCL [Suspect]
     Active Substance: VENLAFAXINE HYDROCHLORIDE
     Indication: BACK PAIN
     Route: 048
     Dates: start: 20200507, end: 20200915
  4. VENLAFAXINE HCL [Suspect]
     Active Substance: VENLAFAXINE HYDROCHLORIDE
     Indication: BACK PAIN
     Route: 048
     Dates: start: 20200915
  5. VITAMIN D [Concomitant]
     Active Substance: VITAMIN D NOS
  6. LEVOTHYROXINE. [Concomitant]
     Active Substance: LEVOTHYROXINE
  7. CALCIUM [Concomitant]
     Active Substance: CALCIUM

REACTIONS (1)
  - Dysgeusia [None]
